FAERS Safety Report 5402544-2 (Version None)
Quarter: 2007Q3

REPORT INFORMATION
  Report Type: 
  Country: None (occurrence: None)
  Receive Date: 20070801
  Receipt Date: 20061110
  Transmission Date: 20080115
  Serious: No
  Sender: FDA-Public Use
  Company Number: A0627022A

PATIENT
  Age: 46 Year
  Sex: Male

DRUGS (1)
  1. IMITREX [Suspect]
     Indication: MIGRAINE
     Dosage: 100MG PER DAY
     Route: 048
     Dates: start: 20020201

REACTIONS (1)
  - HEADACHE [None]
